FAERS Safety Report 11874446 (Version 1)
Quarter: 2015Q4

REPORT INFORMATION
  Report Type: Spontaneous
  Country: US (occurrence: None)
  Receive Date: 20151228
  Receipt Date: 20151228
  Transmission Date: 20160305
  Serious: Yes (Other)
  Sender: FDA-Public Use
  Company Number: None

PATIENT
  Age: 65 Year
  Sex: Male
  Weight: 80.74 kg

DRUGS (10)
  1. SIMVASTIN [Concomitant]
     Active Substance: SIMVASTATIN
  2. FISH OIL [Concomitant]
     Active Substance: FISH OIL
  3. VITAMIN B COMPLEX [Concomitant]
     Active Substance: CYANOCOBALAMIN\DEXPANTHENOL\NIACINAMIDE\PYRIDOXINE HYDROCHLORIDE\RIBOFLAVIN 5^-PHOSPHATE SODIUM\THIAMINE HYDROCHLORIDE\VITAMIN B COMPLEX
  4. RAPAFLO [Concomitant]
     Active Substance: SILODOSIN
  5. AMLODIPINE BESYLATE 5MG CIPLA USA, INC. [Suspect]
     Active Substance: AMLODIPINE BESYLATE
     Indication: HYPERTENSION
     Dosage: 1.5
     Route: 048
  6. LISINOPRIL. [Concomitant]
     Active Substance: LISINOPRIL
  7. VITAMIN C [Concomitant]
     Active Substance: ASCORBIC ACID
  8. ASPRIN [Concomitant]
     Active Substance: ASPIRIN
  9. VIT. D [Concomitant]
  10. ADVIL [Concomitant]
     Active Substance: IBUPROFEN

REACTIONS (14)
  - Flushing [None]
  - Ocular discomfort [None]
  - Heart rate increased [None]
  - Nausea [None]
  - Therapy change [None]
  - Tremor [None]
  - Muscle tightness [None]
  - Product substitution issue [None]
  - Blood pressure increased [None]
  - Discomfort [None]
  - Product quality issue [None]
  - Erythema [None]
  - Headache [None]
  - Anxiety [None]

NARRATIVE: CASE EVENT DATE: 20151219
